FAERS Safety Report 20932982 (Version 4)
Quarter: 2023Q4

REPORT INFORMATION
  Report Type: Spontaneous
  Country: US (occurrence: US)
  Receive Date: 20220608
  Receipt Date: 20231212
  Transmission Date: 20240109
  Serious: Yes (Other)
  Sender: FDA-Public Use
  Company Number: US-PFIZER INC-202200810098

PATIENT
  Age: 73 Year
  Sex: Female
  Weight: 78.005 kg

DRUGS (6)
  1. IBRANCE [Suspect]
     Active Substance: PALBOCICLIB
     Indication: Breast cancer female
     Dosage: 100 MG
     Dates: start: 20211117
  2. IBRANCE [Suspect]
     Active Substance: PALBOCICLIB
     Dosage: DAY 1 THROUGH 21 Q 28 DAYS
  3. IBRANCE [Suspect]
     Active Substance: PALBOCICLIB
     Dosage: DAY 1 THROUGH 21 Q 28 DAYS
     Dates: start: 20220201
  4. IBRANCE [Suspect]
     Active Substance: PALBOCICLIB
     Dosage: 3 WEEKS ON, 2 WEEK OFF
     Dates: start: 20220412
  5. IBRANCE [Suspect]
     Active Substance: PALBOCICLIB
     Dosage: DAILY D1-21 EVERY 35 DAYS
     Route: 048
  6. FEMARA [Concomitant]
     Active Substance: LETROZOLE
     Dosage: UNK
     Dates: start: 20211117

REACTIONS (6)
  - Leukopenia [Unknown]
  - Neutropenia [Unknown]
  - Hypoacusis [Unknown]
  - Breakthrough COVID-19 [Recovered/Resolved]
  - Product use issue [Unknown]
  - Off label use [Unknown]
